FAERS Safety Report 6483661-5 (Version None)
Quarter: 2009Q4

REPORT INFORMATION
  Report Type: 
  Country: None (occurrence: None)
  Receive Date: 20091123
  Receipt Date: 20090727
  Transmission Date: 20100525
  Serious: No
  Sender: FDA-Public Use
  Company Number: 8049496

PATIENT
  Age: 48 Year
  Sex: Female
  Weight: 74.3 kg

DRUGS (4)
  1. CIMZIA [Suspect]
     Indication: CROHN'S DISEASE
     Dosage: 400 MG SC
     Route: 058
     Dates: start: 20090725
  2. PREDNISONE TAB [Concomitant]
  3. KAPIDEX [Concomitant]
  4. SIMVASTATIN [Concomitant]

REACTIONS (1)
  - INJECTION SITE DISCOLOURATION [None]
